FAERS Safety Report 8456594-2 (Version None)
Quarter: 2012Q2

REPORT INFORMATION
  Report Type: 
  Country: None (occurrence: None)
  Receive Date: 20120621
  Receipt Date: 20120614
  Transmission Date: 20120825
  Serious: Yes (Hospitalization)
  Sender: FDA-Public Use
  Company Number: DE-ROCHE-1080418

PATIENT
  Sex: Female

DRUGS (4)
  1. LUCENTIS [Suspect]
     Indication: MACULAR DEGENERATION
     Route: 050
     Dates: start: 20110427
  2. RAMIPRIL [Concomitant]
  3. BISOPROLOL FUMARATE [Concomitant]
  4. FUROSEMIDE [Concomitant]

REACTIONS (2)
  - EMBOLISM ARTERIAL [None]
  - CEREBRAL INFARCTION [None]
